FAERS Safety Report 15750539 (Version 2)
Quarter: 2018Q4

REPORT INFORMATION
  Report Type: Report from Study
  Country: None (occurrence: US)
  Receive Date: 20181221
  Receipt Date: 20181226
  Transmission Date: 20190205
  Serious: Yes (Hospitalization, Other)
  Sender: FDA-Public Use
  Company Number: US-ABBVIE-18K-163-2593258-00

PATIENT
  Sex: Male
  Weight: 90.8 kg

DRUGS (6)
  1. HYDROCORTISONE. [Concomitant]
     Active Substance: HYDROCORTISONE
     Indication: CROHN^S DISEASE
  2. HUMIRA [Suspect]
     Active Substance: ADALIMUMAB
     Indication: CROHN^S DISEASE
     Route: 058
     Dates: start: 2015, end: 201810
  3. OMEPRAZOLE. [Concomitant]
     Active Substance: OMEPRAZOLE
     Indication: GASTROOESOPHAGEAL REFLUX DISEASE
  4. CYCLOBENZAPRINE. [Concomitant]
     Active Substance: CYCLOBENZAPRINE
     Indication: PRODUCT USED FOR UNKNOWN INDICATION
  5. PREDNISONE. [Concomitant]
     Active Substance: PREDNISONE
     Indication: CROHN^S DISEASE
  6. PEPCID [Concomitant]
     Active Substance: FAMOTIDINE
     Indication: GASTROOESOPHAGEAL REFLUX DISEASE

REACTIONS (15)
  - Diarrhoea [Unknown]
  - Muscle spasms [Unknown]
  - Nausea [Recovered/Resolved]
  - Gout [Unknown]
  - Feeling abnormal [Unknown]
  - Nausea [Recovered/Resolved]
  - Dehydration [Recovered/Resolved]
  - Malaise [Unknown]
  - Blood potassium increased [Recovered/Resolved]
  - Dialysis [Recovering/Resolving]
  - Joint range of motion decreased [Unknown]
  - Muscle spasms [Recovering/Resolving]
  - Hypotension [Recovering/Resolving]
  - Implantable defibrillator insertion [Unknown]
  - Middle insomnia [Unknown]

NARRATIVE: CASE EVENT DATE: 201607
